FAERS Safety Report 12527427 (Version 1)
Quarter: 2016Q3

REPORT INFORMATION
  Report Type: Spontaneous
  Country: DE (occurrence: DE)
  Receive Date: 20160705
  Receipt Date: 20160705
  Transmission Date: 20161109
  Serious: Yes (Death, Other)
  Sender: FDA-Public Use
  Company Number: DE-009507513-2003-108892-NL

PATIENT

DRUGS (2)
  1. ORGARAN [Suspect]
     Active Substance: DANAPAROID SODIUM
     Indication: THROMBOSIS PROPHYLAXIS
     Dosage: DOSE TEXT: TOTAL DOSAGE RANGED INTRAOPERATIVELY BETWEEN 6,500 TO13,500 UNITS
  2. ORGARAN [Suspect]
     Active Substance: DANAPAROID SODIUM
     Indication: HEPARIN-INDUCED THROMBOCYTOPENIA

REACTIONS (2)
  - Ventricular arrhythmia [Fatal]
  - Haemorrhage [Unknown]
